FAERS Safety Report 15682854 (Version 1)
Quarter: 2018Q4

REPORT INFORMATION
  Report Type: Spontaneous
  Country: US (occurrence: US)
  Receive Date: 20181203
  Receipt Date: 20181203
  Transmission Date: 20190205
  Serious: Yes (Other)
  Sender: FDA-Public Use
  Company Number: US-HETERO CORPORATE-HET2018US01490

PATIENT
  Sex: Male
  Weight: 108 kg

DRUGS (2)
  1. ALPRAZOLAM. [Concomitant]
     Active Substance: ALPRAZOLAM
     Indication: PRODUCT USED FOR UNKNOWN INDICATION
     Dosage: 1 MG
     Route: 065
  2. VALSARTAN. [Suspect]
     Active Substance: VALSARTAN
     Indication: PAIN
     Dosage: 320 MG (2-3 TIMES A DAY)
     Route: 065
     Dates: start: 2015, end: 2018

REACTIONS (3)
  - Neoplasm malignant [Not Recovered/Not Resolved]
  - Poisoning [Not Recovered/Not Resolved]
  - Off label use [Unknown]
